FAERS Safety Report 24072933 (Version 1)
Quarter: 2024Q3

REPORT INFORMATION
  Report Type: Spontaneous
  Country: ES (occurrence: ES)
  Receive Date: 20240710
  Receipt Date: 20240710
  Transmission Date: 20241016
  Serious: Yes (Death)
  Sender: ROCHE
  Company Number: None

PATIENT
  Age: 49 Year
  Sex: Female
  Weight: 46.9 kg

DRUGS (9)
  1. VALGANCICLOVIR [Suspect]
     Active Substance: VALGANCICLOVIR
     Indication: Cytomegalovirus viraemia
     Route: 042
     Dates: start: 20230317, end: 20230415
  2. CIPROFLOXACIN [Suspect]
     Active Substance: CIPROFLOXACIN
     Indication: Infection
     Dosage: BID
     Route: 048
     Dates: start: 20230508
  3. CETIRIZINE [Suspect]
     Active Substance: CETIRIZINE HYDROCHLORIDE
     Indication: Psoriasis
     Route: 048
     Dates: start: 20230321, end: 20230512
  4. FOSFOMYCIN [Suspect]
     Active Substance: FOSFOMYCIN
     Indication: Urinary tract infection
     Route: 065
     Dates: start: 20230424, end: 20230426
  5. AZTREONAM [Suspect]
     Active Substance: AZTREONAM
     Indication: Pyrexia
     Dosage: EVERY 8 HOURS; TID
     Route: 042
     Dates: start: 20230506, end: 20230508
  6. PREDNISONE [Suspect]
     Active Substance: PREDNISONE
     Indication: Product used for unknown indication
     Dosage: DOSE WAS REDUCED
     Route: 065
     Dates: start: 20230316
  7. PREDNISONE [Suspect]
     Active Substance: PREDNISONE
     Dosage: REDUCED TO 20
     Route: 065
  8. METRONIDAZOLE [Suspect]
     Active Substance: METRONIDAZOLE
     Indication: Infection
     Dosage: EVERY 8 HOURS; TID
     Route: 048
     Dates: start: 20230508
  9. TIGECYCLINE [Suspect]
     Active Substance: TIGECYCLINE
     Indication: Pyrexia
     Dosage: BID
     Route: 042
     Dates: start: 20230506, end: 20230508

REACTIONS (3)
  - Toxic epidermal necrolysis [Fatal]
  - Pleural effusion [Unknown]
  - Off label use [Unknown]

NARRATIVE: CASE EVENT DATE: 20230511
